FAERS Safety Report 4688619-4 (Version None)
Quarter: 2005Q2

REPORT INFORMATION
  Report Type: 
  Country: None (occurrence: None)
  Receive Date: 20050608
  Receipt Date: 20050408
  Transmission Date: 20051028
  Serious: No
  Sender: FDA-Public Use
  Company Number: 2005-BP-05914BP

PATIENT
  Sex: Female

DRUGS (16)
  1. SPIRIVA [Suspect]
     Indication: ASTHMA
     Dosage: 18 MCG (18 MCG), IH
     Route: 055
     Dates: start: 20040604
  2. SPIRIVA [Suspect]
     Indication: BRONCHITIS
     Dosage: 18 MCG (18 MCG), IH
     Route: 055
     Dates: start: 20040604
  3. SPIRIVA [Suspect]
     Indication: EMPHYSEMA
     Dosage: 18 MCG (18 MCG), IH
     Route: 055
     Dates: start: 20040604
  4. ADVAIR DISKUS 100/50 [Concomitant]
  5. SYNTHROID [Concomitant]
  6. LASIX [Concomitant]
  7. COZAAR [Concomitant]
  8. METAFORMIN (METFORMIN) [Concomitant]
  9. PRANDIN (DEFLAZACORT) [Concomitant]
  10. FOSAMAX [Concomitant]
  11. MOBILIN (SULINDAC) [Concomitant]
  12. NORVASC [Concomitant]
  13. XALATAN [Concomitant]
  14. ALPHATAN [Concomitant]
  15. ALBUTEROL [Concomitant]
  16. METHYLDOPA [Concomitant]

REACTIONS (1)
  - DRUG INEFFECTIVE [None]
